FAERS Safety Report 13703850 (Version 1)
Quarter: 2017Q2

REPORT INFORMATION
  Report Type: Spontaneous
  Country: US (occurrence: US)
  Receive Date: 20170629
  Receipt Date: 20170629
  Transmission Date: 20170830
  Serious: No
  Sender: FDA-Public Use
  Company Number: US-TARO-2017TAR00195

PATIENT
  Sex: Male

DRUGS (2)
  1. LIDOCAINE CREAM [Concomitant]
     Route: 061
  2. CLOTRIMAZOLE/BETAMETHASONE DIPROPIONATE CREAM USP 1%/0.05% [Suspect]
     Active Substance: BETAMETHASONE DIPROPIONATE\CLOTRIMAZOLE
     Indication: LACERATION

REACTIONS (2)
  - Wound complication [Unknown]
  - Off label use [Unknown]

NARRATIVE: CASE EVENT DATE: 201703
